FAERS Safety Report 7820573-6 (Version None)
Quarter: 2011Q4

REPORT INFORMATION
  Report Type: 
  Country: None (occurrence: None)
  Receive Date: 20111018
  Receipt Date: 20111012
  Transmission Date: 20120403
  Serious: Yes (Hospitalization, Other)
  Sender: FDA-Public Use
  Company Number: PHEH2011US02473

PATIENT
  Sex: Female

DRUGS (7)
  1. MAGNESIUM OXIDE [Concomitant]
     Dosage: 400 MG SIG 2 PER DAY
  2. SYNTHROID [Concomitant]
     Dosage: 0.75 MG ONE DAILY
  3. RECLAST [Suspect]
     Indication: OSTEOPOROSIS
     Dosage: 5 MG
     Route: 042
     Dates: start: 20090911
  4. POTASSIUM ACETATE [Concomitant]
     Dosage: SIG 1 PER DAY
  5. SOMA [Concomitant]
     Dosage: 350 MG SIG: 1 TID DISPENSE:270
  6. CALCITRIOL [Concomitant]
     Dosage: 0.5 MG SIG: ONE ALTERNATING WITH 2 DAILY REFILLS :3
  7. PREVACID [Concomitant]
     Dosage: 500 MG SIG 1 IN AM

REACTIONS (5)
  - HYPOCALCAEMIA [None]
  - URINARY TRACT INFECTION [None]
  - RENAL FAILURE [None]
  - PAIN [None]
  - HYPOGLYCAEMIA [None]
